FAERS Safety Report 17798346 (Version 10)
Quarter: 2022Q3

REPORT INFORMATION
  Report Type: Report from Study
  Country: IT (occurrence: None)
  Receive Date: 20200518
  Receipt Date: 20220901
  Transmission Date: 20221027
  Serious: Yes (Hospitalization)
  Sender: FDA-Public Use
  Company Number: IT-ROCHE-2598043

PATIENT
  Age: 51 Year
  Sex: Female
  Weight: 81 kg

DRUGS (15)
  1. ATEZOLIZUMAB [Suspect]
     Active Substance: ATEZOLIZUMAB
     Indication: HER2 positive breast cancer
     Dosage: DATE OF MOST RECENT DOSE OF BLINDED ATEZOLIZUMAB PRIOR TO AE/SAE ONSET: 29/APR/2020 AND 25/AUG/2020
     Route: 041
     Dates: start: 20190507
  2. DOXORUBICIN [Suspect]
     Active Substance: DOXORUBICIN
     Indication: HER2 positive breast cancer
     Dosage: DATE OF MOST RECENT DOSE OF DOXORUBICIN PRIOR TO AE/SAE ONSET: 18/JUN/2019 (117 MG)
     Route: 042
     Dates: start: 20190507
  3. TRASTUZUMAB [Suspect]
     Active Substance: TRASTUZUMAB
     Indication: HER2 positive breast cancer
     Dosage: LOADING DOSE
     Route: 041
     Dates: start: 20190716
  4. TRASTUZUMAB [Suspect]
     Active Substance: TRASTUZUMAB
     Dosage: DATE OF MOST RECENT DOSE OF TRASTUZUMAB PRIOR TO AE/SAE ONSET: 29/APR/2020 AND 25/AUG/2020 (486 MG),
     Route: 041
     Dates: start: 20190716
  5. PERTUZUMAB [Suspect]
     Active Substance: PERTUZUMAB
     Indication: HER2 positive breast cancer
     Dosage: LOADING DOSE
     Route: 042
     Dates: start: 20190716
  6. PERTUZUMAB [Suspect]
     Active Substance: PERTUZUMAB
     Dosage: DATE OF MOST RECENT DOSE OF PERTUZUMAB PRIOR TO AE/SAE ONSET: 29/APR/2020 AND 25/AUG/2020, 29/JUL/20
     Route: 042
     Dates: start: 20190716
  7. PACLITAXEL [Suspect]
     Active Substance: PACLITAXEL
     Indication: HER2 positive breast cancer
     Dosage: DATE OF MOST RECENT DOSE OF PACLITAXEL PRIOR TO AE/SAE ONSET: 11/OCT/2019 (115 MG)
     Route: 042
     Dates: start: 20190716
  8. CYCLOPHOSPHAMIDE [Suspect]
     Active Substance: CYCLOPHOSPHAMIDE
     Indication: HER2 positive breast cancer
     Dosage: DATE OF MOST RECENT DOSE OF CYCLOPHOSPHAMIDE PRIOR TO AE/SAE ONSET: 18/JUN/2019 (1170 MG)
     Route: 042
     Dates: start: 20190507
  9. FILGRASTIM [Concomitant]
     Active Substance: FILGRASTIM
     Route: 030
     Dates: start: 20190507
  10. POTASSIUM CHLORIDE [Concomitant]
     Active Substance: POTASSIUM CHLORIDE
     Indication: Hypokalaemia
     Route: 048
     Dates: start: 20190905
  11. PREDNISONE [Concomitant]
     Active Substance: PREDNISONE
     Indication: Blood creatine phosphokinase increased
     Route: 048
     Dates: start: 20200318
  12. LEVOTHYROXINE SODIUM [Concomitant]
     Active Substance: LEVOTHYROXINE SODIUM
     Indication: Hypothyroidism
     Route: 048
     Dates: start: 20200330
  13. CHOLECALCIFEROL [Concomitant]
     Active Substance: CHOLECALCIFEROL
     Indication: Osteoporosis
     Dosage: ML
     Route: 048
     Dates: start: 20200617
  14. EXEMESTANE [Concomitant]
     Active Substance: EXEMESTANE
     Route: 048
     Dates: start: 20200617
  15. METOCLOPRAMIDE HYDROCHLORIDE [Concomitant]
     Active Substance: METOCLOPRAMIDE HYDROCHLORIDE
     Route: 048
     Dates: start: 20190508, end: 20210510

REACTIONS (3)
  - Atrial fibrillation [Recovered/Resolved]
  - Tachycardia [Recovered/Resolved]
  - Hyperthyroidism [Recovering/Resolving]

NARRATIVE: CASE EVENT DATE: 20200507
